FAERS Safety Report 23107248 (Version 1)
Quarter: 2023Q4

REPORT INFORMATION
  Report Type: Spontaneous
  Country: GB (occurrence: GB)
  Receive Date: 20231026
  Receipt Date: 20231026
  Transmission Date: 20240110
  Serious: Yes (Life-Threatening)
  Sender: FDA-Public Use
  Company Number: GB-MHRA-MED-202310040831182070-LSBRV

PATIENT
  Age: 85 Year
  Sex: Female
  Weight: 78 kg

DRUGS (18)
  1. TRANEXAMIC ACID [Suspect]
     Active Substance: TRANEXAMIC ACID
     Indication: Surgery
     Dosage: 1 GRAM (1G IV SINGLE DOSE)
     Route: 065
     Dates: start: 20230915, end: 20230915
  2. BETADINE [Suspect]
     Active Substance: POVIDONE-IODINE
     Indication: Product used for unknown indication
     Dosage: UNK
     Route: 065
     Dates: start: 20230915
  3. CHLORHEXIDINE [Suspect]
     Active Substance: CHLORHEXIDINE\CHLORHEXIDINE GLUCONATE
     Indication: Surgery
     Dosage: UNK
     Route: 065
     Dates: start: 20230915, end: 20230915
  4. GENTAMICIN [Suspect]
     Active Substance: GENTAMICIN
     Indication: Surgery
     Dosage: 120 MILLIGRAM (120 MG STAT)
     Route: 065
     Dates: start: 20230915, end: 20230915
  5. LEVOBUPIVACAINE [Suspect]
     Active Substance: LEVOBUPIVACAINE
     Indication: Spinal anaesthesia
     Dosage: 15 MILLIGRAM
     Route: 065
     Dates: start: 20230915, end: 20230915
  6. LIDOCAINE [Suspect]
     Active Substance: LIDOCAINE
     Indication: Anaesthesia
     Dosage: 30 MILLIGRAM (30MG SINGLE DOSE S/C; ;)
     Route: 065
     Dates: start: 20230915, end: 20230915
  7. MORPHINE [Suspect]
     Active Substance: MORPHINE
     Indication: Anaesthesia
     Dosage: 100 MICROGRAM
     Route: 065
     Dates: start: 20230915, end: 20230915
  8. PROPOFOL [Suspect]
     Active Substance: PROPOFOL
     Indication: Sedative therapy
     Dosage: INFUSION
     Route: 065
     Dates: start: 20230915, end: 20230915
  9. ROPIVACAINE [Suspect]
     Active Substance: ROPIVACAINE
     Indication: Anaesthesia procedure
     Dosage: 90 MILLIGRAM
     Route: 065
     Dates: start: 20230915, end: 20230915
  10. TEICOPLANIN [Suspect]
     Active Substance: TEICOPLANIN
     Indication: Surgery
     Dosage: 800 MILLIGRAM (800MG SINGLE DOSE)
     Route: 065
     Dates: start: 20230915, end: 20230915
  11. BACLOFEN [Concomitant]
     Active Substance: BACLOFEN
     Indication: Product used for unknown indication
     Dosage: UNK
     Route: 065
  12. FUROSEMIDE [Concomitant]
     Active Substance: FUROSEMIDE
     Indication: Product used for unknown indication
     Dosage: UNK
     Route: 065
  13. MIRABEGRON [Concomitant]
     Active Substance: MIRABEGRON
     Indication: Product used for unknown indication
     Dosage: UNK
     Route: 065
  14. RAMIPRIL [Concomitant]
     Active Substance: RAMIPRIL
     Indication: Product used for unknown indication
     Dosage: UNK
     Route: 065
  15. FLUTICASONE FUROATE\VILANTEROL TRIFENATATE [Concomitant]
     Active Substance: FLUTICASONE FUROATE\VILANTEROL TRIFENATATE
     Indication: Product used for unknown indication
     Dosage: UNK
     Route: 065
  16. RIVAROXABAN [Concomitant]
     Active Substance: RIVAROXABAN
     Indication: Adverse drug reaction
     Dosage: UNK
     Route: 065
  17. SOLIFENACIN [Concomitant]
     Active Substance: SOLIFENACIN
     Indication: Product used for unknown indication
     Dosage: UNK
     Route: 065
  18. TRELEGY ELLIPTA [Concomitant]
     Active Substance: FLUTICASONE FUROATE\UMECLIDINIUM BROMIDE\VILANTEROL TRIFENATATE
     Indication: Product used for unknown indication
     Dosage: UNK
     Route: 065

REACTIONS (2)
  - Stridor [Recovered/Resolved]
  - Wheezing [Recovered/Resolved]

NARRATIVE: CASE EVENT DATE: 20230915
